FAERS Safety Report 4296604-X (Version None)
Quarter: 2004Q1

REPORT INFORMATION
  Report Type: 
  Country: None (occurrence: None)
  Receive Date: 20040205
  Receipt Date: 20030121
  Transmission Date: 20041129
  Serious: Yes (Other)
  Sender: FDA-Public Use
  Company Number: WAES 0301USA02008

PATIENT
  Age: 70 Year
  Sex: Male
  Weight: 83.9154 kg

DRUGS (6)
  1. ELSPAR [Suspect]
     Indication: ACUTE LYMPHOCYTIC LEUKAEMIA
     Dosage: 12,800 DOSE/1X/IV
     Route: 042
     Dates: start: 20030110
  2. EPOGEN [Concomitant]
  3. CYCLOPHOSPHAMIDE [Concomitant]
  4. DAUNORUBICIN HCL [Concomitant]
  5. PREDNISONE [Concomitant]
  6. VINCRISTINE [Concomitant]

REACTIONS (1)
  - BLOOD FIBRINOGEN DECREASED [None]
